FAERS Safety Report 7519238-X (Version None)
Quarter: 2011Q2

REPORT INFORMATION
  Report Type: 
  Country: None (occurrence: None)
  Receive Date: 20110602
  Receipt Date: 20110524
  Transmission Date: 20111010
  Serious: Yes (Hospitalization)
  Sender: FDA-Public Use
  Company Number: JP-B.I. PHARMACEUTICALS,INC./RIDGEFIELD-2011-BP-12904NB

PATIENT
  Sex: Male
  Weight: 74 kg

DRUGS (7)
  1. RABEPRAZOLE SODIUM [Concomitant]
     Indication: REFLUX OESOPHAGITIS
     Dosage: 10 MG
     Route: 048
     Dates: end: 20110429
  2. SUNRYTHM [Concomitant]
     Indication: ATRIAL FIBRILLATION
     Dosage: 150 MG
     Route: 048
     Dates: end: 20110429
  3. MAGMITT [Concomitant]
     Indication: CONSTIPATION
     Dosage: 660 MG
     Route: 048
     Dates: end: 20110429
  4. PRADAXA [Suspect]
     Indication: ATRIAL FIBRILLATION
     Dosage: 220 MG
     Route: 048
     Dates: start: 20110402, end: 20110511
  5. URSO 250 [Concomitant]
     Indication: CHOLELITHIASIS
     Dosage: 300 MG
     Route: 048
     Dates: end: 20110429
  6. FLIVAS [Concomitant]
     Indication: BENIGN PROSTATIC HYPERPLASIA
     Dosage: 50 MG
     Route: 048
     Dates: end: 20110429
  7. ALLOPURINOL [Concomitant]
     Indication: HYPERURICAEMIA
     Dosage: 200 MG
     Route: 048
     Dates: end: 20110429

REACTIONS (2)
  - HICCUPS [None]
  - HAEMATEMESIS [None]
